FAERS Safety Report 8950844 (Version 1)
Quarter: 2012Q4

REPORT INFORMATION
  Report Type: Spontaneous
  Country: US (occurrence: None)
  Receive Date: 20121130
  Receipt Date: 20121130
  Transmission Date: 20130627
  Serious: Yes (Life-Threatening, Hospitalization, Disabling, Other)
  Sender: FDA-Public Use
  Company Number: None

PATIENT
  Age: 81 Year
  Sex: Female
  Weight: 62.6 kg

DRUGS (1)
  1. VANCOCIN [Suspect]
     Indication: CLOSTRIDIUM DIFFICILE INFECTION
     Dosage: one capsule, 4 times/day; 5 day; po
     Route: 048
     Dates: start: 20121120, end: 20121121

REACTIONS (3)
  - Rash [None]
  - Oedema peripheral [None]
  - Renal impairment [None]
